FAERS Safety Report 7296605-3 (Version None)
Quarter: 2011Q1

REPORT INFORMATION
  Report Type: 
  Country: None (occurrence: None)
  Receive Date: 20110216
  Receipt Date: 20110207
  Transmission Date: 20110831
  Serious: Yes (Hospitalization)
  Sender: FDA-Public Use
  Company Number: PHHO2010SE16319

PATIENT
  Sex: Male
  Weight: 83.6 kg

DRUGS (15)
  1. GLYCERYL TRINITRATE [Suspect]
     Indication: ANGINA PECTORIS
  2. BLINDED ALISKIREN [Suspect]
     Dosage: NO TREATMENT
     Dates: start: 20101024, end: 20101025
  3. BLINDED NO TREATMENT RECEIVED [Suspect]
     Indication: CARDIOVASCULAR DISORDER
     Dosage: CODE NOT BROKEN
     Route: 048
     Dates: start: 20080707, end: 20101023
  4. METOPROLOL [Suspect]
  5. ISRADIPINE [Suspect]
  6. BLINDED PLACEBO [Suspect]
     Dosage: NO TREATMENT
     Dates: start: 20101024, end: 20101025
  7. BLINDED ALISKIREN [Suspect]
     Dosage: CODE NOT  BROKEN
     Route: 048
     Dates: start: 20101026
  8. DOXAZOSIN [Suspect]
     Indication: HYPERTENSION
  9. BLINDED ALISKIREN [Suspect]
     Indication: CARDIOVASCULAR DISORDER
     Dosage: CODE NOT BROKEN
     Route: 048
     Dates: start: 20080707, end: 20101023
  10. BLINDED NO TREATMENT RECEIVED [Suspect]
     Dosage: NO TREATMENT
     Dates: start: 20101024, end: 20101025
  11. FUROSEMID [Suspect]
     Indication: HYPERTENSION
  12. KATOPIL [Suspect]
     Indication: HYPERTENSION
  13. BLINDED PLACEBO [Suspect]
     Indication: CARDIOVASCULAR DISORDER
     Dosage: CODE NOT BROKEN
     Route: 048
     Dates: start: 20080707, end: 20101023
  14. BLINDED NO TREATMENT RECEIVED [Suspect]
     Dosage: CODE NOT  BROKEN
     Route: 048
     Dates: start: 20101026
  15. BLINDED PLACEBO [Suspect]
     Dosage: CODE NOT  BROKEN
     Route: 048
     Dates: start: 20101026

REACTIONS (3)
  - PRESYNCOPE [None]
  - HYPOTENSION [None]
  - DIZZINESS [None]
